FAERS Safety Report 11681941 (Version 7)
Quarter: 2016Q3

REPORT INFORMATION
  Report Type: Report from Study
  Country: US (occurrence: US)
  Receive Date: 20151029
  Receipt Date: 20160830
  Transmission Date: 20161109
  Serious: Yes (Hospitalization)
  Sender: FDA-Public Use
  Company Number: PHHO2015US015131

PATIENT
  Age: 77 Year
  Sex: Male
  Weight: 109.75 kg

DRUGS (16)
  1. BLINDED LCZ696 [Suspect]
     Active Substance: SACUBITRIL
     Indication: CARDIAC FAILURE CHRONIC
     Dosage: CODE NOT BROKEN
     Route: 048
     Dates: start: 20150716, end: 20150928
  2. SPIRONOLACTONE. [Suspect]
     Active Substance: SPIRONOLACTONE
     Indication: FLUID OVERLOAD
     Dosage: 25 MG, QD
     Route: 048
     Dates: start: 20141117, end: 20150517
  3. SYMBICORT [Concomitant]
     Active Substance: BUDESONIDE\FORMOTEROL FUMARATE DIHYDRATE
     Indication: PRODUCT USED FOR UNKNOWN INDICATION
     Route: 065
  4. HYDROXYZINE [Concomitant]
     Active Substance: HYDROXYZINE\HYDROXYZINE HYDROCHLORIDE
     Indication: PRODUCT USED FOR UNKNOWN INDICATION
     Route: 065
  5. BLINDED NO TREATMENT RECEIVED [Suspect]
     Active Substance: INVESTIGATIONAL PRODUCT
     Indication: CARDIAC FAILURE CHRONIC
     Dosage: CODE NOT BROKEN
     Route: 048
     Dates: start: 20150716, end: 20150928
  6. VALSARTAN / DIOVAN / VAL489 / CGP 48933 [Suspect]
     Active Substance: VALSARTAN
     Indication: CARDIAC FAILURE CHRONIC
     Dosage: 80 MG, BID
     Route: 048
     Dates: start: 20150511, end: 20150517
  7. ISOSORBIDE MONONITRATE. [Suspect]
     Active Substance: ISOSORBIDE MONONITRATE
     Indication: CHEST PAIN
     Route: 065
  8. VALSARTAN / DIOVAN / VAL489 / CGP 48933 [Suspect]
     Active Substance: VALSARTAN
     Dosage: 80 MG, BID
     Route: 048
     Dates: start: 20150528
  9. FUROSEMIDE. [Suspect]
     Active Substance: FUROSEMIDE
     Dosage: 120 MG, BID
     Route: 048
     Dates: end: 20150517
  10. LASIX [Concomitant]
     Active Substance: FUROSEMIDE
     Indication: PRODUCT USED FOR UNKNOWN INDICATION
     Route: 065
  11. VALSARTAN / DIOVAN / VAL489 / CGP 48933 [Suspect]
     Active Substance: VALSARTAN
     Dosage: UNK
     Route: 048
     Dates: start: 20051118
  12. METOLAZONE. [Suspect]
     Active Substance: METOLAZONE
     Indication: FLUID OVERLOAD
     Dosage: 2.5 MG, QD
     Route: 048
     Dates: start: 20150514, end: 20150514
  13. FUROSEMIDE. [Suspect]
     Active Substance: FUROSEMIDE
     Indication: FLUID OVERLOAD
     Dosage: 120 MG, BID
     Route: 048
     Dates: start: 20081231
  14. FUROSEMIDE. [Suspect]
     Active Substance: FUROSEMIDE
     Dosage: 160 MG, BID
     Route: 048
  15. DIOVAN [Suspect]
     Active Substance: VALSARTAN
     Indication: CARDIAC FAILURE CHRONIC
     Dosage: CODE NOT BROKEN
     Route: 048
     Dates: start: 20150716, end: 20150928
  16. POTASSIUM [Concomitant]
     Active Substance: POTASSIUM
     Indication: PRODUCT USED FOR UNKNOWN INDICATION
     Route: 065

REACTIONS (11)
  - Acute kidney injury [Recovered/Resolved]
  - Acute kidney injury [Recovered/Resolved]
  - Bradycardia [Recovered/Resolved]
  - Cardiac disorder [Recovered/Resolved]
  - Hyperglycaemia [Recovered/Resolved]
  - Chest pain [Recovered/Resolved]
  - Hyperkalaemia [Recovered/Resolved]
  - Hypotension [Recovered/Resolved]
  - Hypotension [Recovered/Resolved]
  - Angina pectoris [Recovered/Resolved]
  - Cardiac failure [Recovered/Resolved]

NARRATIVE: CASE EVENT DATE: 20150517
